FAERS Safety Report 25455849 (Version 1)
Quarter: 2025Q2

REPORT INFORMATION
  Report Type: Spontaneous
  Country: FR (occurrence: FR)
  Receive Date: 20250619
  Receipt Date: 20250619
  Transmission Date: 20250716
  Serious: Yes (Hospitalization)
  Sender: ROCHE
  Company Number: None

PATIENT
  Age: 73 Year
  Sex: Female
  Weight: 170 kg

DRUGS (1)
  1. ALECENSA [Suspect]
     Active Substance: ALECTINIB HYDROCHLORIDE
     Indication: Lung adenocarcinoma
     Route: 048
     Dates: start: 20250319, end: 20250516

REACTIONS (2)
  - Haemolytic anaemia [Recovering/Resolving]
  - Spur cell anaemia [Recovering/Resolving]

NARRATIVE: CASE EVENT DATE: 20250507
